FAERS Safety Report 10235715 (Version 2)
Quarter: 2014Q3

REPORT INFORMATION
  Report Type: Spontaneous
  Country: US (occurrence: US)
  Receive Date: 20140613
  Receipt Date: 20140714
  Transmission Date: 20150326
  Serious: Yes (Other)
  Sender: FDA-Public Use
  Company Number: US-PFIZER INC-2014162944

PATIENT
  Age: 58 Year
  Sex: Female
  Weight: 87.5 kg

DRUGS (4)
  1. PRISTIQ EXTENDED RELEASE [Suspect]
     Active Substance: DESVENLAFAXINE SUCCINATE
     Indication: GRIEF REACTION
  2. PRISTIQ EXTENDED RELEASE [Suspect]
     Active Substance: DESVENLAFAXINE SUCCINATE
     Indication: DEPRESSION
     Dosage: 100 MG, DAILY
     Dates: start: 201312, end: 201403
  3. NOVOLOG [Concomitant]
     Active Substance: INSULIN ASPART
     Indication: INSULIN RESISTANT DIABETES
     Dosage: UNK, AS NEEDED IN THE MORNING
  4. LANTUS [Concomitant]
     Active Substance: INSULIN GLARGINE
     Indication: INSULIN RESISTANT DIABETES
     Dosage: 40-60 CC, DAILY IN THE EVENING

REACTIONS (5)
  - Accident [Unknown]
  - Cerebrovascular accident [Unknown]
  - Blindness [Unknown]
  - Restless legs syndrome [Unknown]
  - Amnesia [Unknown]

NARRATIVE: CASE EVENT DATE: 2014
